FAERS Safety Report 19589192 (Version 2)
Quarter: 2021Q3

REPORT INFORMATION
  Report Type: Spontaneous
  Country: GB (occurrence: GB)
  Receive Date: 20210721
  Receipt Date: 20210812
  Transmission Date: 20211014
  Serious: Yes (Hospitalization)
  Sender: FDA-Public Use
  Company Number: GB-MYLANLABS-2021M1043497

PATIENT
  Age: 60 Year
  Sex: Male

DRUGS (5)
  1. CLOZARIL [Suspect]
     Active Substance: CLOZAPINE
     Dosage: 12.5 MILLIGRAM, PM
     Route: 048
     Dates: start: 20210711, end: 20210715
  2. CLOZARIL [Suspect]
     Active Substance: CLOZAPINE
     Indication: SCHIZOPHRENIA
     Dosage: 200 MILLIGRAM, QD
     Route: 048
     Dates: start: 20070208, end: 20210702
  3. TEICOPLANIN [Concomitant]
     Active Substance: TEICOPLANIN
     Indication: URINARY TRACT INFECTION
     Dosage: UNK
  4. CLOZARIL [Suspect]
     Active Substance: CLOZAPINE
     Dosage: 25 MILLIGRAM, AM
     Route: 048
     Dates: start: 20210715, end: 20210716
  5. CLOZARIL [Suspect]
     Active Substance: CLOZAPINE
     Dosage: 200 MILLIGRAM, STAT
     Route: 048
     Dates: start: 20210708, end: 20210708

REACTIONS (9)
  - Neuroleptic malignant syndrome [Recovering/Resolving]
  - Urinary tract infection [Unknown]
  - White blood cell count increased [Unknown]
  - Eating disorder [Unknown]
  - Communication disorder [Unknown]
  - Blood urea increased [Unknown]
  - Psychotic disorder [Recovered/Resolved]
  - Therapy interrupted [Recovered/Resolved]
  - Incorrect dose administered [Recovered/Resolved]

NARRATIVE: CASE EVENT DATE: 20210702
